FAERS Safety Report 24355901 (Version 1)
Quarter: 2024Q3

REPORT INFORMATION
  Report Type: Spontaneous
  Country: US (occurrence: US)
  Receive Date: 20240924
  Receipt Date: 20240924
  Transmission Date: 20241016
  Serious: No
  Sender: JOHNSON AND JOHNSON
  Company Number: US-JNJFOC-20240951576

PATIENT

DRUGS (3)
  1. AMIVANTAMAB [Suspect]
     Active Substance: AMIVANTAMAB
     Indication: Product used for unknown indication
     Route: 065
  2. CARBOPLATIN [Concomitant]
     Active Substance: CARBOPLATIN
     Route: 065
  3. PEMETREXED [Concomitant]
     Active Substance: PEMETREXED

REACTIONS (1)
  - Infusion related reaction [Unknown]
